FAERS Safety Report 5161771-2 (Version None)
Quarter: 2006Q4

REPORT INFORMATION
  Report Type: 
  Country: None (occurrence: None)
  Receive Date: 20061121
  Receipt Date: 20061108
  Transmission Date: 20070319
  Serious: Yes (Hospitalization, Other)
  Sender: FDA-Public Use
  Company Number: 2006127960

PATIENT
  Age: 74 Year
  Sex: Male
  Weight: 51.9 kg

DRUGS (13)
  1. VFEND [Suspect]
     Indication: FUNGAL INFECTION
     Dosage: 400 MG (200 MG, 2 IN 1 D), ORAL
     Route: 048
     Dates: start: 20060913, end: 20060926
  2. ALDACTONE [Concomitant]
  3. MICARDIS [Concomitant]
  4. ROXATIDINE ACETATE HCL [Concomitant]
  5. PREDNISOLONE [Concomitant]
  6. BIO THREE (BACTERIA NOS) [Concomitant]
  7. FUNGIZONE [Concomitant]
  8. POVIDONE IODINE [Concomitant]
  9. ACTONEL [Concomitant]
  10. GLUCOSE (GLUCOSE) [Concomitant]
  11. HUMALOG [Concomitant]
  12. HUMACART-N (INSULIN HUMAN) [Concomitant]
  13. PRODIF (FOSFLUCONAZOLE) [Concomitant]

REACTIONS (6)
  - DEPRESSED LEVEL OF CONSCIOUSNESS [None]
  - DRUG LEVEL INCREASED [None]
  - HEPATIC FUNCTION ABNORMAL [None]
  - HYPONATRAEMIA [None]
  - MALAISE [None]
  - SOMNOLENCE [None]
